FAERS Safety Report 9460585 (Version 4)
Quarter: 2014Q1

REPORT INFORMATION
  Report Type: Spontaneous
  Country: US (occurrence: US)
  Receive Date: 20130815
  Receipt Date: 20140107
  Transmission Date: 20141002
  Serious: Yes (Hospitalization, Other)
  Sender: FDA-Public Use
  Company Number: US-PFIZER INC-2013236272

PATIENT
  Age: 51 Year
  Sex: Female
  Weight: 67.57 kg

DRUGS (16)
  1. XANAX [Suspect]
     Indication: ANXIETY
     Dosage: 0.5 MG, 3X/DAY
  2. XANAX [Suspect]
     Indication: PULMONARY HYPERTENSION
     Dosage: 0.25 MG, UNK
     Dates: start: 2013
  3. REVATIO [Suspect]
     Indication: PULMONARY HYPERTENSION
     Dosage: 20 MG, 3X/DAY
     Dates: start: 2005
  4. REVATIO [Suspect]
     Indication: PULMONARY ARTERIAL HYPERTENSION
     Dosage: 20 MG, UNK
     Dates: start: 20120501, end: 2012
  5. REVATIO [Suspect]
     Indication: LUNG DISORDER
     Dosage: 10 MG, 2X/DAY
     Dates: start: 201210
  6. REVATIO [Suspect]
     Dosage: 5 MG, 2X/DAY
  7. REVATIO [Suspect]
     Dosage: UNK
  8. REVATIO [Suspect]
     Dosage: 20 MG, 3X/DAY
  9. SPIRIVA [Concomitant]
     Dosage: 18MCG/1 CAPSULE 1 PUFF DAILY
  10. OMEPRAZOLE [Concomitant]
     Dosage: 40 MG, UNK
  11. OXYCODONE [Concomitant]
     Dosage: 0.05 MG, UNK
  12. WARFARIN SODIUM [Concomitant]
     Dosage: 5 MG, UNK
  13. COREG [Concomitant]
     Dosage: UNK
  14. LACTULOSE [Concomitant]
     Dosage: UNK
  15. LASIX [Concomitant]
     Dosage: UNK
  16. TUMS [Concomitant]
     Dosage: UNK

REACTIONS (14)
  - Pneumonia [Unknown]
  - Gastric infection [Unknown]
  - Liver disorder [Unknown]
  - Arrhythmia [Unknown]
  - Mitral valve disease [Unknown]
  - Upper respiratory tract infection [Unknown]
  - Somnolence [Unknown]
  - Off label use [Unknown]
  - Fatigue [Unknown]
  - Nasal congestion [Unknown]
  - Drug ineffective [Unknown]
  - Malnutrition [Unknown]
  - Hypotension [Unknown]
  - Oedema [Unknown]
